FAERS Safety Report 6526104-5 (Version None)
Quarter: 2010Q1

REPORT INFORMATION
  Report Type: 
  Country: None (occurrence: None)
  Receive Date: 20100104
  Receipt Date: 20091222
  Transmission Date: 20100710
  Serious: Yes (Congenital Anomaly, Other)
  Sender: FDA-Public Use
  Company Number: GB-PFIZER INC-2009297768

PATIENT
  Sex: Female
  Weight: 1.44 kg

DRUGS (9)
  1. CYCLOPHOSPHAMIDE [Suspect]
     Indication: IMMUNOSUPPRESSANT DRUG THERAPY
     Dosage: 1 G, UNK
     Route: 064
  2. CYCLOPHOSPHAMIDE [Suspect]
     Indication: VASCULITIS
  3. SOLU-MEDRONE [Suspect]
     Indication: IMMUNOSUPPRESSANT DRUG THERAPY
     Dosage: 1 G, 1X/DAY
     Route: 064
  4. SOLU-MEDRONE [Suspect]
     Indication: VASCULITIS
  5. DELTA-CORTEF [Suspect]
     Indication: IMMUNOSUPPRESSANT DRUG THERAPY
     Dosage: 60 MG, UNK
     Route: 064
  6. DELTA-CORTEF [Suspect]
     Indication: VASCULITIS
  7. CO-TRIMOXAZOLE [Suspect]
     Indication: PROPHYLAXIS
     Route: 064
  8. BETAMETHASONE [Suspect]
     Indication: MATERNAL THERAPY TO ENHANCE FOETAL LUNG MATURITY
     Route: 064
  9. BETAMETHASONE [Suspect]
     Dosage: 12 MG, UNK
     Route: 030

REACTIONS (4)
  - DRUG EXPOSURE DURING PREGNANCY [None]
  - FOETAL GROWTH RETARDATION [None]
  - PELVIC KIDNEY [None]
  - SOLITARY KIDNEY [None]
